FAERS Safety Report 5700753-6 (Version None)
Quarter: 2008Q2

REPORT INFORMATION
  Report Type: 
  Country: None (occurrence: None)
  Receive Date: 20080410
  Receipt Date: 20080305
  Transmission Date: 20081010
  Serious: No
  Sender: FDA-Public Use
  Company Number: A0713573A

PATIENT
  Age: 69 Year
  Sex: Female

DRUGS (7)
  1. TYKERB [Suspect]
     Indication: BREAST CANCER
     Dosage: 1000MG PER DAY
     Route: 048
     Dates: start: 20070511
  2. XELODA [Concomitant]
  3. IXEMPRA KIT [Concomitant]
  4. CELEBREX [Concomitant]
  5. DIAVAN [Concomitant]
  6. POTASSIUM CHLORIDE [Concomitant]
  7. OXYCODONE HCL [Concomitant]

REACTIONS (7)
  - ANOREXIA [None]
  - BURNING SENSATION [None]
  - CHEST PAIN [None]
  - DIZZINESS [None]
  - DRUG INEFFECTIVE [None]
  - NAUSEA [None]
  - PAIN [None]
